FAERS Safety Report 8608782-X (Version None)
Quarter: 2012Q3

REPORT INFORMATION
  Report Type: 
  Country: None (occurrence: None)
  Receive Date: 20120809
  Receipt Date: 20120809
  Transmission Date: 20120928
  Serious: Yes (Other)
  Sender: FDA-Public Use
  Company Number: None

PATIENT
  Age: 69 Year
  Sex: Female

DRUGS (2)
  1. RECLAST [Suspect]
     Indication: OSTEOPOROSIS
     Dates: start: 20100901, end: 20111101
  2. BONIVA [Suspect]
     Indication: OSTEOPOROSIS
     Dates: start: 20070101, end: 20080101

REACTIONS (2)
  - STRESS FRACTURE [None]
  - FEMUR FRACTURE [None]
